FAERS Safety Report 19702159 (Version 1)
Quarter: 2021Q3

REPORT INFORMATION
  Report Type: Spontaneous
  Country: US (occurrence: US)
  Receive Date: 20210813
  Receipt Date: 20210813
  Transmission Date: 20211014
  Serious: Yes (Other)
  Sender: FDA-Public Use
  Company Number: US-AMERICAN REGENT INC-2021002062

PATIENT
  Age: 5 Month
  Sex: Female

DRUGS (6)
  1. PHENOBARBITAL. [Suspect]
     Active Substance: PHENOBARBITAL
     Indication: SEIZURE
     Dosage: UNK, MAINTENANCE REGIMEN
     Route: 065
  2. DEXMEDETOMIDINE HYDROCHLORIDE INJECTION (0517?0995?25) [Concomitant]
     Active Substance: DEXMEDETOMIDINE HYDROCHLORIDE
     Indication: PRODUCT USED FOR UNKNOWN INDICATION
     Dosage: UNK, CONTINUOUS INFUSION
     Route: 042
  3. LEVETIRACETAM INJECTION (0517?3605?01) [Suspect]
     Active Substance: LEVETIRACETAM
     Indication: SEIZURE
     Dosage: UNK, MAINTENANCE REGIMEN
     Route: 065
  4. LORAZEPAM. [Suspect]
     Active Substance: LORAZEPAM
     Indication: SEIZURE
     Dosage: UNK, MAINTENANCE REGIMEN
     Route: 065
  5. MIDAZOLAM. [Concomitant]
     Active Substance: MIDAZOLAM
     Indication: PRODUCT USED FOR UNKNOWN INDICATION
     Dosage: UNK, CONTINUOUS INFUSION
     Route: 042
  6. LACOSAMIDE. [Suspect]
     Active Substance: LACOSAMIDE
     Indication: SEIZURE
     Dosage: UNK, MAINTENANCE REGIMEN
     Route: 065

REACTIONS (2)
  - Seizure [Recovering/Resolving]
  - Drug ineffective [Recovering/Resolving]
